FAERS Safety Report 7954063-7 (Version None)
Quarter: 2011Q4

REPORT INFORMATION
  Report Type: 
  Country: None (occurrence: None)
  Receive Date: 20111202
  Receipt Date: 20111123
  Transmission Date: 20120403
  Serious: Yes (Hospitalization, Other)
  Sender: FDA-Public Use
  Company Number: US-BAYER-2011-113752

PATIENT
  Age: 28 Year
  Sex: Female

DRUGS (1)
  1. BEYAZ [Suspect]
     Indication: CONTRACEPTION
     Dosage: UNK
     Route: 048
     Dates: start: 20110101

REACTIONS (3)
  - VISUAL IMPAIRMENT [None]
  - RETINAL VASCULAR THROMBOSIS [None]
  - HYPERTENSION [None]
